FAERS Safety Report 9399695 (Version 1)
Quarter: 2013Q3

REPORT INFORMATION
  Report Type: Spontaneous
  Country: GB (occurrence: GB)
  Receive Date: 20130715
  Receipt Date: 20130715
  Transmission Date: 20140515
  Serious: Yes (Other)
  Sender: FDA-Public Use
  Company Number: GB-JNJFOC-20130707445

PATIENT
  Sex: Female

DRUGS (4)
  1. STELARA [Suspect]
     Indication: PRODUCT USED FOR UNKNOWN INDICATION
     Route: 058
  2. AMITRIPTYLIN [Concomitant]
     Route: 065
  3. LANSOPRAZOLE [Concomitant]
     Route: 065
  4. SYMBICORT [Concomitant]
     Route: 055

REACTIONS (2)
  - Lower respiratory tract infection [Recovered/Resolved]
  - Skin lesion [Recovered/Resolved]
